FAERS Safety Report 12631660 (Version 2)
Quarter: 2016Q3

REPORT INFORMATION
  Report Type: Spontaneous
  Country: US (occurrence: US)
  Receive Date: 20160808
  Receipt Date: 20160808
  Transmission Date: 20161109
  Serious: No
  Sender: FDA-Public Use
  Company Number: US-BEH-2015055232

PATIENT
  Age: 67 Year
  Sex: Male
  Weight: 81 kg

DRUGS (28)
  1. ACETAMINOPHEN. [Concomitant]
     Active Substance: ACETAMINOPHEN
  2. LASIX [Concomitant]
     Active Substance: FUROSEMIDE
  3. AMOXICILLIN. [Concomitant]
     Active Substance: AMOXICILLIN
  4. PLAVIX [Concomitant]
     Active Substance: CLOPIDOGREL BISULFATE
  5. SPIRIVA [Concomitant]
     Active Substance: TIOTROPIUM BROMIDE MONOHYDRATE
  6. HIZENTRA [Suspect]
     Active Substance: HUMAN IMMUNOGLOBULIN G
     Route: 058
  7. PERFOROMIST [Concomitant]
     Active Substance: FORMOTEROL FUMARATE DIHYDRATE
  8. GLIPIZIDE. [Concomitant]
     Active Substance: GLIPIZIDE
  9. HIZENTRA [Suspect]
     Active Substance: HUMAN IMMUNOGLOBULIN G
     Route: 058
  10. HIZENTRA [Suspect]
     Active Substance: HUMAN IMMUNOGLOBULIN G
     Indication: IMMUNODEFICIENCY COMMON VARIABLE
     Route: 058
  11. HIZENTRA [Suspect]
     Active Substance: HUMAN IMMUNOGLOBULIN G
     Route: 058
  12. LEVEMIR [Concomitant]
     Active Substance: INSULIN DETEMIR
  13. LISINOPRIL. [Concomitant]
     Active Substance: LISINOPRIL
  14. EPIPEN [Concomitant]
     Active Substance: EPINEPHRINE
  15. PHENERGAN [Concomitant]
     Active Substance: PROMETHAZINE HYDROCHLORIDE
  16. TAMIFLU [Concomitant]
     Active Substance: OSELTAMIVIR PHOSPHATE
  17. CEFTIN [Concomitant]
     Active Substance: CEFUROXIME AXETIL
  18. LOSARTAN. [Concomitant]
     Active Substance: LOSARTAN
  19. OXYGEN. [Concomitant]
     Active Substance: OXYGEN
  20. PULMICORT TURBUHALER [Concomitant]
     Active Substance: BUDESONIDE
  21. ALBUTEROL. [Concomitant]
     Active Substance: ALBUTEROL
  22. TRICOR [Concomitant]
     Active Substance: FENOFIBRATE
  23. AZITHROMYCIN ANHYDROUS. [Concomitant]
     Active Substance: AZITHROMYCIN ANHYDROUS
  24. DIPHENHYDRAMINE. [Concomitant]
     Active Substance: DIPHENHYDRAMINE
  25. LIDOCAINE. [Concomitant]
     Active Substance: LIDOCAINE
  26. LIPITOR [Concomitant]
     Active Substance: ATORVASTATIN CALCIUM
  27. GLUCOPHAGE [Concomitant]
     Active Substance: METFORMIN HYDROCHLORIDE
  28. ZYRTEC [Concomitant]
     Active Substance: CETIRIZINE HYDROCHLORIDE

REACTIONS (1)
  - Nasopharyngitis [Recovered/Resolved]

NARRATIVE: CASE EVENT DATE: 201509
